FAERS Safety Report 5754308-8 (Version None)
Quarter: 2008Q2

REPORT INFORMATION
  Report Type: 
  Country: None (occurrence: None)
  Receive Date: 20080530
  Receipt Date: 20080521
  Transmission Date: 20081010
  Serious: Yes (Disabling)
  Sender: FDA-Public Use
  Company Number: DE-PFIZER INC-2008040591

PATIENT
  Sex: Female
  Weight: 64 kg

DRUGS (1)
  1. DETRUSITOL LA [Suspect]
     Indication: URGE INCONTINENCE
     Dosage: DAILY DOSE:4MG-FREQ:DAILY
     Route: 048
     Dates: start: 20060101, end: 20080401

REACTIONS (4)
  - ABDOMINAL PAIN [None]
  - LIVER DISORDER [None]
  - LIVER FUNCTION TEST ABNORMAL [None]
  - PANCREATIC ENZYMES INCREASED [None]
